FAERS Safety Report 6228303-9 (Version None)
Quarter: 2009Q2

REPORT INFORMATION
  Report Type: 
  Country: None (occurrence: None)
  Receive Date: 20090612
  Receipt Date: 20090604
  Transmission Date: 20091009
  Serious: Yes (Hospitalization)
  Sender: FDA-Public Use
  Company Number: PHHO2007US18549

PATIENT
  Sex: Male
  Weight: 97.7 kg

DRUGS (9)
  1. RAD 666 RAD+TAB+PTR [Suspect]
     Indication: HEART TRANSPLANT
     Dosage: 4.0 MG DAILY
     Route: 048
     Dates: start: 20071013
  2. RAD 666 RAD+TAB+PTR [Suspect]
     Dosage: 2 MG, BID
     Route: 048
     Dates: start: 20071101, end: 20080917
  3. NEORAL [Concomitant]
     Indication: HEART TRANSPLANT
     Dosage: 200 MG, BID
     Route: 048
     Dates: start: 20071101
  4. NEORAL [Concomitant]
     Dosage: 75 MG, BID
     Route: 048
  5. AMARYL [Concomitant]
  6. PREDNISONE [Concomitant]
     Indication: HEART TRANSPLANT
     Dosage: 20 MG, BID
     Route: 048
     Dates: start: 20071101
  7. PREDNISONE [Concomitant]
     Dosage: 10 MG, DAILY
     Route: 048
  8. SEPTRA [Concomitant]
     Dates: start: 20071016
  9. VALTREX [Concomitant]
     Dosage: 1000 MG DAILY
     Route: 048

REACTIONS (21)
  - BLOOD GLUCOSE DECREASED [None]
  - CONFUSIONAL STATE [None]
  - DYSPNOEA [None]
  - HAEMOPTYSIS [None]
  - HYPERHIDROSIS [None]
  - HYPOGLYCAEMIA [None]
  - HYPOPHAGIA [None]
  - HYPOTENSION [None]
  - HYPOXIA [None]
  - INTERSTITIAL LUNG DISEASE [None]
  - LUNG DISORDER [None]
  - LUNG INFILTRATION [None]
  - MALAISE [None]
  - MENTAL STATUS CHANGES [None]
  - NEURALGIA [None]
  - PERICARDIAL EFFUSION [None]
  - PERICARDIAL EXCISION [None]
  - PYREXIA [None]
  - RESPIRATORY FAILURE [None]
  - RIGHT VENTRICULAR DYSFUNCTION [None]
  - SERRATIA BACTERAEMIA [None]
